FAERS Safety Report 8313027-4 (Version None)
Quarter: 2012Q2

REPORT INFORMATION
  Report Type: 
  Country: None (occurrence: None)
  Receive Date: 20120424
  Receipt Date: 20120410
  Transmission Date: 20120825
  Serious: Yes (Disabling)
  Sender: FDA-Public Use
  Company Number: 2012MA004989

PATIENT
  Age: 86 Year
  Sex: Female

DRUGS (2)
  1. LOSARTAN POTASSIUM [Suspect]
     Indication: HYPERTENSION
     Dosage: 100 MG;;PO
     Route: 048
     Dates: start: 20111222, end: 20120308
  2. IRBESARTAN [Concomitant]

REACTIONS (1)
  - NIGHT SWEATS [None]
